FAERS Safety Report 6481405-4 (Version None)
Quarter: 2009Q4

REPORT INFORMATION
  Report Type: 
  Country: None (occurrence: None)
  Receive Date: 20091208
  Receipt Date: 20090314
  Transmission Date: 20100525
  Serious: No
  Sender: FDA-Public Use
  Company Number: US-AMGEN-KDL338567

PATIENT
  Sex: Female
  Weight: 61.7 kg

DRUGS (3)
  1. ENBREL [Suspect]
     Indication: PSORIATIC ARTHROPATHY
     Route: 058
     Dates: start: 20090220
  2. LORTAB [Concomitant]
     Dates: start: 20081210
  3. TYLENOL (CAPLET) [Concomitant]

REACTIONS (1)
  - EPISTAXIS [None]
